FAERS Safety Report 13660256 (Version 2)
Quarter: 2017Q2

REPORT INFORMATION
  Report Type: Spontaneous
  Country: NL (occurrence: NL)
  Receive Date: 20170616
  Receipt Date: 20170622
  Transmission Date: 20170830
  Serious: Yes (Life-Threatening, Hospitalization)
  Sender: FDA-Public Use
  Company Number: NL-TEVA-779179ACC

PATIENT
  Age: 63 Year
  Sex: Male
  Weight: 85 kg

DRUGS (16)
  1. OMEPRAZOL CAPSULE MSR 40MG [Concomitant]
     Active Substance: OMEPRAZOLE
     Dosage: 40 MILLIGRAM DAILY;
     Route: 048
  2. FLUTICASON-PROPIONAAT NEUSSPRAY 50UG/DO [Concomitant]
     Active Substance: FLUTICASONE PROPIONATE
     Dosage: 50 MICROGRAM DAILY;
     Route: 045
  3. METFORMIN [Concomitant]
     Active Substance: METFORMIN HYDROCHLORIDE
     Dosage: 2000 MILLIGRAM DAILY;
     Route: 048
  4. LIXIANA TABLET FILMOMHULD 60MG [Concomitant]
     Dosage: 60 MILLIGRAM DAILY;
     Route: 048
     Dates: start: 20170104, end: 20170524
  5. ACETYLSALICYLZUUR DISPERTABLET 80MG [Concomitant]
     Active Substance: ASPIRIN
     Dosage: 80 MILLIGRAM DAILY;
     Route: 048
     Dates: end: 20170105
  6. FUROSEMIDE TABLET 20MG [Concomitant]
     Dosage: FROM 26-APR-2017: 2 TIMES DAILY 40MG
     Route: 048
  7. ALLOPURINOL TABLET 300MG [Concomitant]
     Dosage: 450 MILLIGRAM DAILY;
     Route: 048
  8. LYRICA [Concomitant]
     Active Substance: PREGABALIN
     Dosage: 300 MILLIGRAM DAILY;
     Route: 048
  9. DULOXETINE CAPSULE MSR 60MG [Suspect]
     Active Substance: DULOXETINE
     Indication: NEURALGIA
     Dosage: 60 MILLIGRAM DAILY;
     Route: 048
     Dates: start: 20161109, end: 20170529
  10. PROCORALAN TABLET FILMOMHULD 7,5MG [Concomitant]
     Dosage: 15 MILLIGRAM DAILY;
     Route: 048
     Dates: end: 20170104
  11. BISOPROLOL TABLET   5MG [Concomitant]
     Dosage: 5 MILLIGRAM DAILY;
     Route: 048
     Dates: start: 20170104
  12. SIMVASTATINE TABLET 40MG [Concomitant]
     Active Substance: SIMVASTATIN
     Dosage: 40 MILLIGRAM DAILY;
     Route: 048
  13. VALSARTAN TABLET OMHULD  80MG [Concomitant]
     Dosage: 80 MILLIGRAM DAILY;
     Route: 048
  14. DULOXETINE CAPSULE MSR 30MG [Suspect]
     Active Substance: DULOXETINE
     Indication: NEURALGIA
     Dosage: DOSAGE INCREASED FROM 60MG TO 90MG / DAY
     Route: 048
     Dates: start: 20161117, end: 20170529
  15. GLIMEPIRIDE TABLET 3MG [Concomitant]
     Dosage: 3 MILLIGRAM DAILY;
     Route: 048
  16. SYMBICORT TURBUHALER INHALPDR 200/6MCG/DO 120DO [Concomitant]
     Dosage: 4 DOSAGE FORMS DAILY;
     Route: 055

REACTIONS (1)
  - Atrial fibrillation [Not Recovered/Not Resolved]

NARRATIVE: CASE EVENT DATE: 201701
